FAERS Safety Report 19582998 (Version 3)
Quarter: 2021Q3

REPORT INFORMATION
  Report Type: Report from Study
  Country: CN (occurrence: CN)
  Receive Date: 20210719
  Receipt Date: 20210818
  Transmission Date: 20211014
  Serious: Yes (Hospitalization)
  Sender: FDA-Public Use
  Company Number: CN-JIANGSU HENGRUI MEDICINE CO., LTD.-2114009

PATIENT
  Age: 64 Year
  Sex: Female
  Weight: 42 kg

DRUGS (3)
  1. DOCETAXEL INJECTION USP, 20 MG/1 ML, 80 MG/4 ML, AND 160 MG/8 ML (20 M [Suspect]
     Active Substance: DOCETAXEL
     Indication: BREAST CANCER
     Route: 041
     Dates: start: 20210421, end: 20210421
  2. PYROTINIB MALEATE. [Suspect]
     Active Substance: PYROTINIB MALEATE
     Route: 048
     Dates: start: 20210427, end: 20210712
  3. TRASTUZUMAB INJECTION [Suspect]
     Active Substance: TRASTUZUMAB
     Route: 041
     Dates: start: 20210421, end: 20210421

REACTIONS (1)
  - Blood creatinine increased [Recovered/Resolved]

NARRATIVE: CASE EVENT DATE: 20210713
